FAERS Safety Report 20923597 (Version 1)
Quarter: 2022Q2

REPORT INFORMATION
  Report Type: Report from Study
  Country: US (occurrence: US)
  Receive Date: 20220607
  Receipt Date: 20220607
  Transmission Date: 20220721
  Serious: Yes (Hospitalization)
  Sender: FDA-Public Use
  Company Number: US-GILEAD-2022-0583634

PATIENT
  Sex: Female

DRUGS (1)
  1. AZTREONAM LYSINE [Suspect]
     Active Substance: AZTREONAM LYSINE
     Indication: Cystic fibrosis
     Dosage: 75 MG, TID, FOR 28 DAYS, EVERY OTHER MONTH ROTATION
     Route: 055
     Dates: start: 20190608

REACTIONS (2)
  - Liver disorder [Not Recovered/Not Resolved]
  - Stomatitis [Unknown]
